FAERS Safety Report 15598699 (Version 1)
Quarter: 2018Q4

REPORT INFORMATION
  Report Type: Report from Study
  Country: US (occurrence: US)
  Receive Date: 20181108
  Receipt Date: 20181108
  Transmission Date: 20190205
  Serious: Yes (Hospitalization, Other)
  Sender: FDA-Public Use
  Company Number: US-BRISTOL-MYERS SQUIBB COMPANY-BMS-2018-051009

PATIENT
  Age: 69 Year
  Sex: Female

DRUGS (5)
  1. LOVENOX [Concomitant]
     Active Substance: ENOXAPARIN SODIUM
     Indication: PULMONARY EMBOLISM
     Route: 065
  2. PLAVIX [Concomitant]
     Active Substance: CLOPIDOGREL BISULFATE
     Indication: ATRIAL FIBRILLATION
     Route: 065
  3. NIVOLUMAB [Suspect]
     Active Substance: NIVOLUMAB
     Indication: UVEAL MELANOMA
     Dosage: UNK
     Route: 065
     Dates: start: 20180312, end: 20180411
  4. IPILIMUMAB [Suspect]
     Active Substance: IPILIMUMAB
     Indication: UVEAL MELANOMA
     Dosage: UNK
     Route: 065
     Dates: start: 20180312, end: 20180411
  5. FLECAINIDE [Concomitant]
     Active Substance: FLECAINIDE
     Indication: ATRIAL FIBRILLATION
     Route: 065

REACTIONS (22)
  - Dermatitis [Unknown]
  - Acute myocardial infarction [Unknown]
  - Metabolic encephalopathy [Unknown]
  - Urinary tract infection [Unknown]
  - Blood creatinine increased [Recovering/Resolving]
  - Renal failure [Unknown]
  - Acute kidney injury [Unknown]
  - Perinephric abscess [Unknown]
  - Lymphocytic hypophysitis [Unknown]
  - Type 2 diabetes mellitus [Unknown]
  - Anaemia [Unknown]
  - Retroperitoneal haematoma [Unknown]
  - Pulmonary embolism [Unknown]
  - Renal haemorrhage [Unknown]
  - Thyroiditis [Unknown]
  - Adrenal insufficiency [Unknown]
  - Cardiovascular deconditioning [Unknown]
  - Toxic encephalopathy [Unknown]
  - Candiduria [Unknown]
  - Cytomegalovirus infection [Unknown]
  - Large intestine perforation [Unknown]
  - Pericardial effusion [Unknown]

NARRATIVE: CASE EVENT DATE: 20180404
